FAERS Safety Report 8954160 (Version 1)
Quarter: 2012Q4

REPORT INFORMATION
  Report Type: 
  Country: US (occurrence: US)
  Receive Date: 20121207
  Receipt Date: 20121207
  Transmission Date: 20130627
  Serious: Yes (Hospitalization, Other)
  Sender: FDA-Public Use
  Company Number: US-ELI_LILLY_AND_COMPANY-US201211008168

PATIENT
  Sex: Male

DRUGS (5)
  1. HUMALOG LISPRO [Suspect]
     Indication: TYPE 2 DIABETES MELLITUS
     Dosage: 40 u, prn
  2. HUMALOG LISPRO [Suspect]
     Dosage: 40 u, prn
  3. HUMALOG LISPRO [Suspect]
     Dosage: 40 u, prn
  4. HUMALOG LISPRO [Suspect]
     Dosage: 40 u, prn
  5. HUMALOG LISPRO [Suspect]
     Dosage: 40 u, prn

REACTIONS (1)
  - Renal transplant [Unknown]
